FAERS Safety Report 5954329-6 (Version None)
Quarter: 2008Q4

REPORT INFORMATION
  Report Type: 
  Country: None (occurrence: None)
  Receive Date: 20081117
  Receipt Date: 20080205
  Transmission Date: 20090506
  Serious: No
  Sender: FDA-Public Use
  Company Number: US-AMGEN-KDL258930

PATIENT
  Sex: Female

DRUGS (4)
  1. ENBREL [Suspect]
     Indication: ANKYLOSING SPONDYLITIS
     Route: 058
     Dates: start: 20071126
  2. TRAMADOL HCL [Concomitant]
     Dates: start: 20070702
  3. XANAX [Concomitant]
     Dates: start: 20071107
  4. METHOTREXATE [Concomitant]
     Dates: start: 20070821

REACTIONS (1)
  - INJECTION SITE ERYTHEMA [None]
